FAERS Safety Report 7178900-1 (Version None)
Quarter: 2010Q4

REPORT INFORMATION
  Report Type: 
  Country: None (occurrence: None)
  Receive Date: 20101209
  Receipt Date: 20101027
  Transmission Date: 20110411
  Serious: Yes (Hospitalization)
  Sender: FDA-Public Use
  Company Number: 2010P1002234

PATIENT
  Age: 11 Year
  Sex: Male

DRUGS (47)
  1. NICARDIPINE HYDROCHLORIDE [Suspect]
     Dosage: IV
     Route: 042
     Dates: start: 20100622, end: 20100624
  2. ULTIVA [Suspect]
     Dosage: IV
     Route: 042
     Dates: start: 20100621, end: 20100708
  3. ROCURONIUM BROMIDE [Suspect]
     Dosage: UID/QD;IV
     Route: 042
     Dates: start: 20100617, end: 20100706
  4. TAKEPRON CAPSULES (NO PREF. NAME) [Suspect]
     Dosage: 7.5 MG;BID;PO
     Route: 048
     Dates: start: 20100628, end: 20100728
  5. ANHIBA (NO PREF. NAME) [Suspect]
     Dosage: RTL
     Dates: start: 20100630, end: 20100716
  6. DIAZEPAM [Suspect]
     Dosage: 4 ML;QD;PO
     Route: 048
     Dates: start: 20100622, end: 20100701
  7. DIAZEPAM [Suspect]
     Dosage: 4 ML;QD;PO
     Route: 048
     Dates: start: 20100702, end: 20100722
  8. MORPHINE HYDROCHLORIDE (NO PREF. NAME) [Suspect]
     Dosage: 2 MG/KG;UID/QD;IV
     Route: 042
     Dates: start: 20100621, end: 20100709
  9. FAMOTIDINE [Suspect]
     Dosage: 7.5 MG;BID;PO 8 MG;BID;IV
     Route: 048
     Dates: start: 20100617, end: 20100626
  10. FAMOTIDINE [Suspect]
     Dosage: 7.5 MG;BID;PO 8 MG;BID;IV
     Route: 048
     Dates: start: 20100626, end: 20100715
  11. . [Concomitant]
  12. CEFAZOLIN [Suspect]
     Dosage: 500 MG;BID;IV
     Route: 042
     Dates: start: 20100622, end: 20100624
  13. NITRAZEPAM [Suspect]
     Dosage: 10 MG;UID/QD;IV
     Route: 042
     Dates: start: 20100617, end: 20100709
  14. PHENOBARBITAL (NO PREF. NAME) [Suspect]
     Dosage: 50 MG;BID;PO
     Route: 048
     Dates: start: 20100622, end: 20100709
  15. AMPICILLIN [Suspect]
     Dosage: 375 ;QID;IV
     Route: 042
     Dates: start: 20100715, end: 20100716
  16. CEFTRIAXONE [Suspect]
     Indication: INFECTION
     Dosage: 200 MG;UID/QD;IV
     Route: 042
     Dates: start: 20100630, end: 20100707
  17. STREPTOCOCCUS FAECALIS (NO PREF. NAME) [Suspect]
     Dosage: 1 GM;PO
     Route: 048
     Dates: start: 20100711, end: 20100718
  18. RISPERIDONE [Suspect]
     Dosage: 0.3 ML;UID/QD/PO
     Route: 048
     Dates: start: 20100702, end: 20100714
  19. PARACETAMOL (NO PREF. NAME) [Suspect]
     Indication: PYREXIA
     Dosage: 300 MG;UID/QD;PO
     Route: 048
     Dates: start: 20100627, end: 20100716
  20. MIDAZOLAM (NO PREF. NAME) [Suspect]
     Dosage: 10 MG;UID/QD;IV
     Route: 042
     Dates: start: 20100621, end: 20100621
  21. CLINDAMYCIN PHOSPHATE [Suspect]
     Dosage: 10 MG;TID;IV
     Route: 042
     Dates: start: 20100708, end: 20100710
  22. PIPERACILLIN SODIUM [Suspect]
     Dosage: 375 MG;QID;IV
     Route: 042
     Dates: start: 20100715, end: 20100716
  23. BIOFERMIN (NO PREF. NAME) [Suspect]
     Dosage: 1 G;QD;PO
     Route: 048
     Dates: start: 20100711, end: 20100718
  24. FUROSEMIDE [Suspect]
     Dosage: 2.5 MG;QID;PO
     Route: 048
     Dates: start: 20100626, end: 20100706
  25. SPIRONOLACTONE [Suspect]
     Dosage: 2.5 MG;QID;PO
     Route: 048
     Dates: start: 20100626, end: 20100706
  26. LACTOBACILLUS CASEI (NO PREF. NAME) [Suspect]
     Dosage: 500 MG;QD;PO
     Route: 048
     Dates: start: 20100702, end: 20100709
  27. ETIZOLAM (NO PREF. NAME) [Suspect]
     Dosage: 1 DOSE;UID/QD;PO
     Route: 048
     Dates: start: 20100701, end: 20100701
  28. TRICLOFOS SODIUM (NO PREF. NAME) [Suspect]
     Dosage: UID/QD;PO
     Route: 048
     Dates: start: 20100628, end: 20100705
  29. SODIUM PICOSULFATE (NO PREF. NAME) [Suspect]
     Dosage: UID/QD;PO
     Route: 048
     Dates: start: 20100620, end: 20100620
  30. OMEPRAZOLE [Suspect]
     Dosage: 7.5 MG;BID;IV
     Route: 042
     Dates: start: 20100716, end: 20100721
  31. HEPARIN SODIUM [Suspect]
     Dosage: UID/QD;IV
     Route: 042
     Dates: start: 20100617
  32. GLYCEOL (NO PREF. NAME) [Suspect]
     Dosage: 200 ML;QD;IV
     Route: 042
     Dates: start: 20100617, end: 20100618
  33. DEXAMETHASONE [Suspect]
     Dosage: 2 MG;QD;IV
     Route: 042
     Dates: start: 20100617, end: 20100622
  34. ATROPINE SULFATE [Suspect]
     Dosage: UID/QD;IV
     Route: 042
     Dates: start: 20100617, end: 20100622
  35. EPINEPHRINE [Suspect]
     Dosage: UID/QD;IV
     Route: 042
     Dates: start: 20100621, end: 20100621
  36. CALCIUM GLUCONATE [Suspect]
     Dosage: UID/QD;IV
     Route: 042
     Dates: start: 20100621, end: 20100621
  37. FENTANYL-100 [Suspect]
     Dosage: IV
     Route: 042
     Dates: start: 20100621, end: 20100708
  38. DEXMEDETOMIDINE HYDROCHLORIDE [Suspect]
     Dosage: IV
     Route: 042
     Dates: start: 20100704, end: 20100705
  39. LIDOCAINE [Suspect]
     Dosage: UID/QD;IV
     Route: 042
     Dates: start: 20100621, end: 20100709
  40. DEXPANTHENOL (NO PREF. NAME) [Suspect]
     Dosage: 25 MG;BID;IV
     Route: 042
     Dates: start: 20100604, end: 20100705
  41. HYDROXYZINE HYDROCHLORIDE [Suspect]
     Dosage: UID/QD;IV
     Route: 042
     Dates: start: 20100709, end: 20100709
  42. FLURBIPROFEN [Suspect]
     Dosage: UID/QD;IV
     Route: 042
     Dates: start: 20100709, end: 20100709
  43. OFLOXACIN [Suspect]
     Dosage: OPH
     Route: 047
     Dates: start: 20100728, end: 20100729
  44. HYALURONATE SODIUM (NO PREF. NAME) [Suspect]
     Dosage: OPH
     Route: 047
     Dates: start: 20100723, end: 20100821
  45. GLYCEROL (NO PREF. NAME) [Suspect]
     Dosage: RTL
     Dates: start: 20100621
  46. . [Concomitant]
  47. . [Concomitant]

REACTIONS (4)
  - DRUG RASH WITH EOSINOPHILIA AND SYSTEMIC SYMPTOMS [None]
  - LYMPHOCYTE STIMULATION TEST POSITIVE [None]
  - OEDEMA [None]
  - PURPURA [None]
